FAERS Safety Report 7201045-9 (Version None)
Quarter: 2010Q4

REPORT INFORMATION
  Report Type: 
  Country: None (occurrence: None)
  Receive Date: 20101229
  Receipt Date: 20101220
  Transmission Date: 20110411
  Serious: Yes (Hospitalization)
  Sender: FDA-Public Use
  Company Number: US-BIOGENIDEC-2010BI040018

PATIENT
  Age: 42 Year
  Sex: Female

DRUGS (22)
  1. TYSABRI [Suspect]
     Indication: MULTIPLE SCLEROSIS
     Route: 042
     Dates: start: 20100312
  2. VYVANSE [Concomitant]
     Indication: FATIGUE
  3. NUVIGIL [Concomitant]
     Indication: FATIGUE
  4. NUVIGIL [Concomitant]
  5. EFFEXOR [Concomitant]
     Indication: PAIN
     Dates: start: 20100101
  6. ADVAIR [Concomitant]
  7. ALBUTEROL [Concomitant]
  8. AMPYRA [Concomitant]
  9. ASPIRIN [Concomitant]
  10. COZAAR [Concomitant]
  11. FENTANYL-100 [Concomitant]
     Route: 062
  12. FLONASE [Concomitant]
  13. LIDODERM [Concomitant]
     Route: 062
  14. NEXIUM [Concomitant]
  15. NORVASC [Concomitant]
  16. REMERON [Concomitant]
  17. SENNA [Concomitant]
  18. SPIRONOLACTONE [Concomitant]
  19. TOPROL-XL [Concomitant]
  20. TRAMADOL [Concomitant]
  21. XYZAL [Concomitant]
  22. ZANAFLEX [Concomitant]

REACTIONS (14)
  - ADVERSE DRUG REACTION [None]
  - BLADDER DISORDER [None]
  - CONTUSION [None]
  - CONVERSION DISORDER [None]
  - EYE PAIN [None]
  - FALL [None]
  - FATIGUE [None]
  - HEADACHE [None]
  - HYPOAESTHESIA FACIAL [None]
  - MOBILITY DECREASED [None]
  - MULTIPLE SCLEROSIS RELAPSE [None]
  - NASOPHARYNGITIS [None]
  - PAIN [None]
  - SINUSITIS [None]
